FAERS Safety Report 7421194-X (Version None)
Quarter: 2011Q2

REPORT INFORMATION
  Report Type: 
  Country: None (occurrence: None)
  Receive Date: 20110407
  Receipt Date: 20110329
  Transmission Date: 20111010
  Serious: Yes (Hospitalization)
  Sender: FDA-Public Use
  Company Number: AX108-11-0261

PATIENT
  Age: 43 Year
  Sex: Female
  Weight: 73.3 kg

DRUGS (3)
  1. AVASTATIN (BEVACIZUMAB) (BEVACIZUMAB) [Suspect]
     Indication: NEOPLASM
     Dosage: 1088 MG
     Dates: start: 20110120, end: 20110303
  2. CARBOPLATIN [Suspect]
     Indication: NEOPLASM
     Dosage: 900 MG
     Dates: start: 20110120
  3. ABRAXANE [Suspect]
     Indication: NEOPLASM
     Dosage: 185 MG, INTRAVENOUS
     Route: 042
     Dates: start: 20110106

REACTIONS (4)
  - WHITE BLOOD CELL COUNT DECREASED [None]
  - GROIN ABSCESS [None]
  - HAEMOGLOBIN DECREASED [None]
  - BLOOD PRESSURE INCREASED [None]
